FAERS Safety Report 6411804-8 (Version None)
Quarter: 2009Q4

REPORT INFORMATION
  Report Type: 
  Country: None (occurrence: None)
  Receive Date: 20091020
  Receipt Date: 20091013
  Transmission Date: 20100525
  Serious: Yes (Hospitalization, Other)
  Sender: FDA-Public Use
  Company Number: 2009SP018994

PATIENT
  Age: 57 Year
  Sex: Male

DRUGS (16)
  1. RIBAVIRIN [Suspect]
     Indication: HEPATITIS C
     Dosage: SEE IMAGE
     Route: 048
     Dates: start: 20080815, end: 20080925
  2. RIBAVIRIN [Suspect]
     Indication: HEPATITIS C
     Dosage: SEE IMAGE
     Route: 048
     Dates: start: 20080926, end: 20081014
  3. RIBAVIRIN [Suspect]
     Indication: HEPATITIS C
     Dosage: SEE IMAGE
     Route: 048
     Dates: start: 20081015, end: 20090309
  4. PEGASYS [Suspect]
     Indication: HEPATITIS C
     Dosage: 180 MCG, QW; SC
     Route: 058
     Dates: start: 20080815, end: 20090309
  5. BUPROPION HCL [Concomitant]
  6. ASPIRIN [Concomitant]
  7. METHADONE [Concomitant]
  8. CLONAZEPAM [Concomitant]
  9. ZOLPIDEM [Concomitant]
  10. GUAIFENESIN [Concomitant]
  11. VITAMIN D [Concomitant]
  12. CITALOPRAM [Concomitant]
  13. FISH OIL [Concomitant]
  14. MIRTAZAPINE [Concomitant]
  15. TOPIRAMATE [Concomitant]
  16. TRAZODONE HCL [Concomitant]

REACTIONS (10)
  - ASTHENIA [None]
  - DEPRESSION [None]
  - HEPATIC FIBROSIS [None]
  - HEPATIC STEATOSIS [None]
  - LOBAR PNEUMONIA [None]
  - NAUSEA [None]
  - NEUTROPENIA [None]
  - RED BLOOD CELL COUNT DECREASED [None]
  - VOMITING [None]
  - WHITE BLOOD CELL COUNT DECREASED [None]
